FAERS Safety Report 19220853 (Version 1)
Quarter: 2021Q2

REPORT INFORMATION
  Report Type: Report from Study
  Country: GB (occurrence: GB)
  Receive Date: 20210505
  Receipt Date: 20210505
  Transmission Date: 20210717
  Serious: Yes (Hospitalization, Other)
  Sender: FDA-Public Use
  Company Number: GB-JNJFOC-20210458819

PATIENT

DRUGS (1)
  1. STELARA [Suspect]
     Active Substance: USTEKINUMAB
     Indication: CROHN^S DISEASE
     Route: 058

REACTIONS (11)
  - Arthralgia [Unknown]
  - Urticaria [Unknown]
  - Basal cell carcinoma [Unknown]
  - Bladder transitional cell carcinoma [Unknown]
  - Headache [Unknown]
  - Infection [Unknown]
  - Hepatocellular carcinoma [Unknown]
  - Abdominal pain [Unknown]
  - Breast cancer [Unknown]
  - Small intestine adenocarcinoma [Unknown]
  - Influenza [Unknown]
